FAERS Safety Report 4654539-4 (Version None)
Quarter: 2005Q2

REPORT INFORMATION
  Report Type: 
  Country: None (occurrence: None)
  Receive Date: 20050504
  Receipt Date: 20050504
  Transmission Date: 20051028
  Serious: Yes (Hospitalization)
  Sender: FDA-Public Use
  Company Number: None

PATIENT
  Age: 61 Year
  Sex: Female
  Weight: 48 kg

DRUGS (11)
  1. IRESSA [Suspect]
     Indication: PANCREATIC CARCINOMA METASTATIC
     Dosage: 250 QD ORAL
     Route: 048
     Dates: start: 20040917, end: 20041102
  2. DOCETAXEL [D1, D8 OF 21 DAY CYCLE) [Suspect]
     Indication: PANCREATIC CARCINOMA METASTATIC
     Dosage: 40 IV
     Route: 042
     Dates: start: 20040917, end: 20041102
  3. SYNTHROID [Concomitant]
  4. MS CONTIN [Concomitant]
  5. LIPRAM-4500 [Concomitant]
  6. PREMARIN [Concomitant]
  7. PROMETRIUM [Concomitant]
  8. DTO [Concomitant]
  9. DECADRON [Concomitant]
  10. MS CONTIN [Concomitant]
  11. ZANTAC [Concomitant]

REACTIONS (3)
  - ABSCESS [None]
  - INFECTION [None]
  - PNEUMATOSIS [None]
